FAERS Safety Report 6397565-X (Version None)
Quarter: 2009Q4

REPORT INFORMATION
  Report Type: 
  Country: None (occurrence: None)
  Receive Date: 20091012
  Receipt Date: 20090903
  Transmission Date: 20100525
  Serious: No
  Sender: FDA-Public Use
  Company Number: PR-BAYER-200932443NA

PATIENT
  Age: 32 Year
  Sex: Female
  Weight: 75 kg

DRUGS (1)
  1. MAGNEVIST [Suspect]
     Indication: NUCLEAR MAGNETIC RESONANCE IMAGING
     Dosage: TOTAL DAILY DOSE: 15 ML
     Route: 042
     Dates: start: 20090903, end: 20090903

REACTIONS (2)
  - ORAL PRURITUS [None]
  - PRURITUS [None]
